FAERS Safety Report 4929674-3 (Version None)
Quarter: 2006Q1

REPORT INFORMATION
  Report Type: 
  Country: None (occurrence: None)
  Receive Date: 20060224
  Receipt Date: 20060215
  Transmission Date: 20060701
  Serious: No
  Sender: FDA-Public Use
  Company Number: 222211

PATIENT
  Age: 27 Year
  Sex: Female
  Weight: 72.6 kg

DRUGS (12)
  1. RITUXAN [Suspect]
     Indication: SYSTEMIC LUPUS ERYTHEMATOSUS
     Dosage: 1/MONTH, INTRAVENOUS
     Route: 042
  2. METHOTREXATE [Concomitant]
  3. CELLCEPT [Concomitant]
  4. PROCRIT [Concomitant]
  5. PREDNISONE TAB [Concomitant]
  6. OXYCONTIN [Concomitant]
  7. OXYCODONE HCL [Concomitant]
  8. NORVASC [Concomitant]
  9. COZAAR [Concomitant]
  10. PROTONIX [Concomitant]
  11. ATIVANT (LORAZEPAM) [Concomitant]
  12. FLEXERIL [Concomitant]

REACTIONS (1)
  - ANAPHYLACTIC SHOCK [None]
